FAERS Safety Report 10764096 (Version 1)
Quarter: 2015Q1

REPORT INFORMATION
  Report Type: Spontaneous
  Country: US (occurrence: US)
  Receive Date: 20150204
  Receipt Date: 20150204
  Transmission Date: 20150721
  Serious: Yes (Hospitalization)
  Sender: FDA-Public Use
  Company Number: US-ALLERGAN-1501557US

PATIENT
  Sex: Male

DRUGS (1)
  1. RESTASIS [Suspect]
     Active Substance: CYCLOSPORINE
     Indication: DRY EYE
     Dosage: 2 GTT, BID
     Route: 047
     Dates: start: 20141215

REACTIONS (3)
  - Fluid retention [Not Recovered/Not Resolved]
  - Renal impairment [Unknown]
  - Renal failure [Unknown]

NARRATIVE: CASE EVENT DATE: 20141226
